FAERS Safety Report 9625757 (Version 2)
Quarter: 2013Q4

REPORT INFORMATION
  Report Type: Spontaneous
  Country: DE (occurrence: DE)
  Receive Date: 20131016
  Receipt Date: 20131016
  Transmission Date: 20140711
  Serious: Yes (Life-Threatening, Hospitalization, Disabling, Other)
  Sender: FDA-Public Use
  Company Number: GXKR2013DE003110

PATIENT
  Age: 7 Week
  Sex: Male
  Weight: 5 kg

DRUGS (1)
  1. AMOXICLAV 1A PHARMA [Suspect]
     Indication: INFECTION PROPHYLAXIS
     Dosage: 2.5 ML, BID
     Route: 048
     Dates: start: 20130919, end: 20130920

REACTIONS (8)
  - Meningitis aseptic [Not Recovered/Not Resolved]
  - Epilepsy [Not Recovered/Not Resolved]
  - Pyrexia [Not Recovered/Not Resolved]
  - Feeding disorder neonatal [Not Recovered/Not Resolved]
  - Red blood cell count decreased [Unknown]
  - Haemoglobin decreased [Unknown]
  - Haematocrit decreased [Unknown]
  - White blood cell count decreased [Unknown]
